FAERS Safety Report 5355983-2 (Version None)
Quarter: 2007Q2

REPORT INFORMATION
  Report Type: 
  Country: None (occurrence: None)
  Receive Date: 20070613
  Receipt Date: 20070605
  Transmission Date: 20071010
  Serious: Yes (Death)
  Sender: FDA-Public Use
  Company Number: JP-BRISTOL-MYERS SQUIBB COMPANY-13811393

PATIENT
  Age: 59 Year
  Sex: Male

DRUGS (9)
  1. ARIPIPRAZOLE [Suspect]
     Indication: SCHIZOPHRENIA
     Dosage: 12MG 16-MAR-07 TO 23-MAR-07; 30MG 23-MAR TO 06-APR; 18MG 06-APR TO 13-APR
     Route: 048
     Dates: start: 20070316, end: 20070413
  2. RISPERIDONE [Suspect]
     Dosage: 3MG 04-APR-2007 TO 13-APR; 6MG 13-APR TO 24-APR
     Route: 048
     Dates: start: 20070404, end: 20070424
  3. DILAZEP HCL [Concomitant]
     Route: 048
     Dates: start: 20070316, end: 20070330
  4. BIPERIDEN HYDROCHLORIDE TAB [Concomitant]
     Dates: start: 20070316, end: 20070413
  5. CHLORPROMAZINE HCL [Concomitant]
     Dates: start: 20070316, end: 20070420
  6. NITRAZEPAM [Concomitant]
     Route: 048
     Dates: start: 20070316, end: 20070424
  7. HALOPERIDOL [Concomitant]
     Route: 048
     Dates: start: 20070316, end: 20070424
  8. SENNOSIDE [Concomitant]
     Route: 048
     Dates: start: 20070316, end: 20070424
  9. LEVOMEPROMAZINE MALEATE [Concomitant]
     Dates: start: 20070404, end: 20070424

REACTIONS (1)
  - HEPATIC FAILURE [None]
